FAERS Safety Report 7433654-6 (Version None)
Quarter: 2011Q2

REPORT INFORMATION
  Report Type: 
  Country: None (occurrence: None)
  Receive Date: 20110422
  Receipt Date: 20110414
  Transmission Date: 20111010
  Serious: Yes (Other)
  Sender: FDA-Public Use
  Company Number: PT-MERCK-1104PRT00008

PATIENT
  Age: 1 Year
  Sex: Male

DRUGS (2)
  1. BUDESONIDE [Concomitant]
     Route: 065
  2. SINGULAIR [Suspect]
     Indication: ASTHMA
     Route: 065
     Dates: start: 20110301

REACTIONS (3)
  - BLOOD CREATINE PHOSPHOKINASE INCREASED [None]
  - BLOOD LACTATE DEHYDROGENASE INCREASED [None]
  - ASPARTATE AMINOTRANSFERASE INCREASED [None]
